FAERS Safety Report 6454080-2 (Version None)
Quarter: 2009Q4

REPORT INFORMATION
  Report Type: 
  Country: None (occurrence: None)
  Receive Date: 20091124
  Receipt Date: 20091118
  Transmission Date: 20100525
  Serious: Yes (Other)
  Sender: FDA-Public Use
  Company Number: B0606363A

PATIENT
  Age: 14 Year
  Sex: Male

DRUGS (2)
  1. RELENZA [Suspect]
     Indication: INFLUENZA
     Dosage: 10MG TWICE PER DAY
     Route: 055
     Dates: start: 20091107
  2. MEPTIN [Concomitant]
     Route: 065

REACTIONS (2)
  - AGGRESSION [None]
  - MENTAL DISORDER [None]
